FAERS Safety Report 7507259-2 (Version None)
Quarter: 2011Q2

REPORT INFORMATION
  Report Type: 
  Country: None (occurrence: None)
  Receive Date: 20110526
  Receipt Date: 20110517
  Transmission Date: 20111010
  Serious: Yes (Death)
  Sender: FDA-Public Use
  Company Number: VE-GENENTECH-319216

PATIENT
  Sex: Female

DRUGS (2)
  1. HYZAAR (HYDROCHLOROTHIAZIDE/LOSARTAN) [Concomitant]
     Indication: PRODUCT USED FOR UNKNOWN INDICATION
     Dosage: UNK
     Dates: start: 20060101
  2. XOLAIR [Suspect]
     Indication: ASTHMA
     Dosage: UNK
     Dates: start: 20101108

REACTIONS (1)
  - RESPIRATORY ARREST [None]
